FAERS Safety Report 7736113-6 (Version None)
Quarter: 2011Q3

REPORT INFORMATION
  Report Type: 
  Country: None (occurrence: None)
  Receive Date: 20110902
  Receipt Date: 20110817
  Transmission Date: 20111222
  Serious: Yes (Death)
  Sender: FDA-Public Use
  Company Number: FK201101743

PATIENT
  Age: 60 Year
  Sex: Female

DRUGS (4)
  1. ELTROXIN (LEVOTHYROXINE SODIUM) (LEVOTHYROXINE SODIUM) [Concomitant]
  2. LETROZOLE [Suspect]
     Indication: PRODUCT USED FOR UNKNOWN INDICATION
     Dosage: ORAL
     Route: 048
     Dates: start: 20100602, end: 20110711
  3. PARACETAMOL (PARACETAMOL) (PARACETAMOL) [Concomitant]
  4. SERETIDE (SERETIDE /01420901/) (SERETIDE /01420901/) [Concomitant]

REACTIONS (2)
  - PULMONARY EMBOLISM [None]
  - DISEASE RECURRENCE [None]
